FAERS Safety Report 17718250 (Version 14)
Quarter: 2020Q4

REPORT INFORMATION
  Report Type: Spontaneous
  Country: DE (occurrence: DE)
  Receive Date: 20200428
  Receipt Date: 20201008
  Transmission Date: 20210113
  Serious: Yes (Life-Threatening, Hospitalization, Other)
  Sender: FDA-Public Use
  Company Number: DE-MYLANLABS-2020M1041505

PATIENT
  Age: 69 Year
  Sex: Male
  Weight: 77 kg

DRUGS (34)
  1. INSULIN GLARGINE [Interacting]
     Active Substance: INSULIN GLARGINE
     Indication: DIABETES MELLITUS
     Dosage: 15 INTERNATIONAL UNIT, QD (15 INTERNATIONAL UNIT, DAILY)
     Route: 065
     Dates: start: 201808
  2. SPIRONOLACTONE. [Interacting]
     Active Substance: SPIRONOLACTONE
     Indication: CARDIAC DISORDER
     Dosage: 50 MILLIGRAM, DAILY, 1-0-0; 50 MILLIGRAM, QD, IN MORNING
     Route: 048
     Dates: start: 201808
  3. CARVEDILOL. [Interacting]
     Active Substance: CARVEDILOL
     Indication: CARDIAC DISORDER
     Dosage: 50 MILLIGRAM, QD (25 MILLIGRAM, Q12H)
     Route: 065
     Dates: start: 201808
  4. TORASEMIDE [Interacting]
     Active Substance: TORSEMIDE
     Dosage: 1 DF, QD (10 UNK, QD)
     Route: 065
     Dates: start: 201808
  5. SIMVASTATIN. [Interacting]
     Active Substance: SIMVASTATIN
     Indication: HYPERTENSION
     Dosage: 40 MILLIGRAM, DAILY, 0-0-1 AT NIGHT
     Route: 048
     Dates: start: 201808
  6. SPIRONOLACTONE. [Interacting]
     Active Substance: SPIRONOLACTONE
     Indication: CORONARY ARTERY DISEASE
     Dosage: 50 MILLIGRAM, QD
     Route: 048
     Dates: start: 20110506
  7. ABASAGLAR [Interacting]
     Active Substance: INSULIN GLARGINE
     Indication: DIABETES MELLITUS
     Dosage: 15 IE ABENDS
     Route: 065
     Dates: start: 201808
  8. CARVEDILOL. [Interacting]
     Active Substance: CARVEDILOL
     Dosage: 25 MILLIGRAM, BID, (1-0-1)
     Route: 065
     Dates: start: 201808
  9. JANUMET [Interacting]
     Active Substance: METFORMIN HYDROCHLORIDE\SITAGLIPTIN PHOSPHATE
     Dosage: 2 DF, Q12H (50/1000 MILLIGRAM)
     Route: 065
     Dates: start: 201808
  10. SIMVASTATIN. [Interacting]
     Active Substance: SIMVASTATIN
     Indication: BLOOD CHOLESTEROL ABNORMAL
     Dosage: 10 MILLIGRAM, QD
     Route: 065
     Dates: start: 201808
  11. AVASTIN [Interacting]
     Active Substance: BEVACIZUMAB
     Indication: DIABETIC RETINAL OEDEMA
     Dosage: 1 DOSAGE FORM ( INJECT IN THE RIGHT EYE AT 1.30 P.M)
     Route: 031
     Dates: start: 20200115
  12. ALLOPURINOL. [Interacting]
     Active Substance: ALLOPURINOL
     Indication: GOUT
     Dosage: 100 MILLIGRAM, QD
     Route: 065
     Dates: start: 201808
  13. ALLOPURINOL. [Interacting]
     Active Substance: ALLOPURINOL
     Dosage: 100 MILLIGRAM, QD
     Route: 065
  14. MILGAMMA PROTEKT [Interacting]
     Active Substance: BENFOTIAMINE
     Indication: CEREBROVASCULAR ACCIDENT PROPHYLAXIS
  15. PROCORALAN [Interacting]
     Active Substance: IVABRADINE
     Indication: CARDIAC DISORDER
     Dosage: 7.5 MILLIGRAM, QD, 1-0-0
     Route: 065
     Dates: start: 201808
  16. JANUMET [Interacting]
     Active Substance: METFORMIN HYDROCHLORIDE\SITAGLIPTIN PHOSPHATE
     Indication: DIABETES MELLITUS
     Dosage: 1 DOSAGE FORM (50/1000MG), DAILY,
     Route: 065
     Dates: start: 201808
  17. JANUMET [Interacting]
     Active Substance: METFORMIN HYDROCHLORIDE\SITAGLIPTIN PHOSPHATE
     Dosage: 1 DOSAGE FORM, Q12H
     Route: 065
     Dates: start: 201808
  18. SIMVASTATIN. [Interacting]
     Active Substance: SIMVASTATIN
     Dosage: 50 MILLIGRAM, DAILY
     Route: 065
     Dates: start: 201808
  19. SIMVASTATIN. [Interacting]
     Active Substance: SIMVASTATIN
     Dosage: 100 MILLIGRAM, QD
     Route: 065
     Dates: start: 201808
  20. ELIQUIS [Interacting]
     Active Substance: APIXABAN
     Indication: ATRIAL FIBRILLATION
     Dosage: 10 MILLIGRAM, QD(5 MILLIGRAM, BID) 1-0-1
     Route: 065
     Dates: start: 201808
  21. RAMIPRIL. [Interacting]
     Active Substance: RAMIPRIL
     Indication: HYPERTENSION
     Dosage: 10 MILLIGRAM, QD / (5 MILLIGRAM, BID,1-0-1)
     Route: 065
     Dates: start: 201808
  22. AVASTIN                            /01326102/ [Suspect]
     Active Substance: ATORVASTATIN CALCIUM
     Indication: DIABETIC RETINAL OEDEMA
     Dosage: INJECT IN THE RIGHT EYE AT 13.30
     Route: 031
     Dates: start: 20200115
  23. TORASEMIDE [Suspect]
     Active Substance: TORSEMIDE
     Indication: RENAL DISORDER
     Dosage: 10 MILLIGRAM, QD IN MORNING, DAILY,1-0-0
     Route: 065
     Dates: start: 201808
  24. SIMVASTATIN. [Interacting]
     Active Substance: SIMVASTATIN
     Indication: GOUT
     Dosage: 50 MILLIGRAM, DAILY
     Route: 065
     Dates: start: 201808
  25. JANUMET [Interacting]
     Active Substance: METFORMIN HYDROCHLORIDE\SITAGLIPTIN PHOSPHATE
     Dosage: 1 DOSAGE FORM (50/1000MG), DAILY, 1 DOSAGE FORM, Q12H
     Route: 065
     Dates: start: 201808
  26. AMLODIPINE [Interacting]
     Active Substance: AMLODIPINE BESYLATE
     Indication: HYPERTENSION
     Dosage: 10 MILLIGRAM, QD (5 MILLIGRAM, BID) 1-0-1
     Route: 065
     Dates: start: 201808
  27. MILGAMMA PROTEKT [Interacting]
     Active Substance: BENFOTIAMINE
     Indication: CARDIOVASCULAR DISORDER
     Dosage: 300 MILLIGRAM, DAILY
     Route: 065
     Dates: start: 201808
  28. LEVETIRACETAM. [Concomitant]
     Active Substance: LEVETIRACETAM
     Indication: PRODUCT USED FOR UNKNOWN INDICATION
     Dosage: 2 DOSAGE FORM, QD (1 DF, BID) 1-0-1
  29. LEVETIRACETAM. [Concomitant]
     Active Substance: LEVETIRACETAM
     Dosage: 2 DF, 1X/DAY (1-0-1)
  30. SIMVASTATIN. [Interacting]
     Active Substance: SIMVASTATIN
     Indication: BLOOD CHOLESTEROL ABNORMAL
     Dosage: 40 MILLIGRAM, DAILY; 0-0-1
     Route: 048
     Dates: start: 20110506
  31. SIMVASTATIN. [Interacting]
     Active Substance: SIMVASTATIN
     Indication: DIABETES MELLITUS
     Dosage: 10 MILLIGRAM, QD
     Route: 065
     Dates: start: 201808
  32. SIMVASTATIN. [Interacting]
     Active Substance: SIMVASTATIN
     Indication: CORONARY ARTERY DISEASE
     Dosage: 15 INTERNATIONAL UNIT, DAILY
     Route: 065
     Dates: start: 201808
  33. ELIQUIS [Interacting]
     Active Substance: APIXABAN
     Indication: CEREBROVASCULAR ACCIDENT PROPHYLAXIS
     Dosage: UNK
  34. ALLOPURINOL. [Interacting]
     Active Substance: ALLOPURINOL
     Dosage: 100 MILLIGRAM, QD

REACTIONS (9)
  - Muscle spasms [Recovered/Resolved]
  - Eye movement disorder [Recovered/Resolved]
  - Movement disorder [Recovered/Resolved]
  - Oculogyric crisis [Recovered/Resolved]
  - Status epilepticus [Recovering/Resolving]
  - Seizure [Recovered/Resolved]
  - Off label use [Unknown]
  - Drug interaction [Recovered/Resolved]
  - Product use issue [Unknown]

NARRATIVE: CASE EVENT DATE: 201808
